FAERS Safety Report 4787524-2 (Version None)
Quarter: 2005Q4

REPORT INFORMATION
  Report Type: 
  Country: None (occurrence: None)
  Receive Date: 20051003
  Receipt Date: 20050916
  Transmission Date: 20060501
  Serious: Yes (Hospitalization)
  Sender: FDA-Public Use
  Company Number: 2005-US-00201

PATIENT
  Age: 39 Year
  Sex: Female

DRUGS (4)
  1. FLUVOXAMINE MALEATE [Suspect]
     Indication: MAJOR DEPRESSION
     Dosage: 150 MG, QD, ORAL
     Route: 048
  2. FLUVOXAMINE MALEATE [Suspect]
     Indication: POST-TRAUMATIC STRESS DISORDER
     Dosage: 150 MG, QD, ORAL
     Route: 048
  3. CITALOPRAM HYDROBROMIDE [Suspect]
     Indication: POST-TRAUMATIC STRESS DISORDER
     Dosage: 10 MG, QD
  4. CLONAZEPAM [Concomitant]

REACTIONS (16)
  - ABDOMINAL PAIN [None]
  - ABDOMINAL PAIN UPPER [None]
  - ANOREXIA [None]
  - ANXIETY [None]
  - BILIARY TRACT DISORDER [None]
  - CATATONIA [None]
  - CHOLESTASIS [None]
  - CYTOLYTIC HEPATITIS [None]
  - DEPRESSION [None]
  - DIALYSIS [None]
  - EMOTIONAL DISTRESS [None]
  - MUTISM [None]
  - PARANOIA [None]
  - RENAL TUBULAR NECROSIS [None]
  - TREATMENT NONCOMPLIANCE [None]
  - VOMITING [None]
